FAERS Safety Report 9013434 (Version 1)
Quarter: 2013Q1

REPORT INFORMATION
  Report Type: Spontaneous
  Country: US (occurrence: US)
  Receive Date: 20130114
  Receipt Date: 20130114
  Transmission Date: 20140127
  Serious: Yes (Hospitalization, Other)
  Sender: FDA-Public Use
  Company Number: US-009507513-1301USA001438

PATIENT
  Age: 9 Year
  Sex: Female

DRUGS (2)
  1. SINGULAIR [Suspect]
     Indication: ASTHMA
     Route: 055
  2. SERETIDE [Suspect]
     Route: 055

REACTIONS (4)
  - Respiratory failure [Unknown]
  - Cyanosis [Unknown]
  - Asthmatic crisis [Unknown]
  - Asthma [Unknown]
